FAERS Safety Report 5480492-X (Version None)
Quarter: 2007Q4

REPORT INFORMATION
  Report Type: 
  Country: None (occurrence: None)
  Receive Date: 20071004
  Receipt Date: 20071004
  Transmission Date: 20080405
  Serious: Yes (Death, Other)
  Sender: FDA-Public Use
  Company Number: None

PATIENT
  Age: 64 Year
  Sex: Male
  Weight: 94.3482 kg

DRUGS (2)
  1. EPOGEN [Suspect]
     Indication: ANAEMIA
     Dosage: ONCE WEEKLY
     Dates: start: 20060825, end: 20061220
  2. ERYTHROPOIETIN ? ? [Suspect]
     Indication: ANAEMIA
     Dosage: 20,000 UNITS WEEKLY OR MORE
     Dates: start: 20070103, end: 20070226

REACTIONS (9)
  - ANAEMIA [None]
  - AORTIC THROMBOSIS [None]
  - CARDIAC FAILURE CONGESTIVE [None]
  - CEREBROVASCULAR ACCIDENT [None]
  - CONFUSIONAL STATE [None]
  - GASTROINTESTINAL HAEMORRHAGE [None]
  - HAEMORRHAGE [None]
  - MENTAL IMPAIRMENT [None]
  - NERVOUS SYSTEM DISORDER [None]
